FAERS Safety Report 4316294-7 (Version None)
Quarter: 2004Q1

REPORT INFORMATION
  Report Type: 
  Country: None (occurrence: None)
  Receive Date: 20040311
  Receipt Date: 20040301
  Transmission Date: 20041129
  Serious: Yes (Hospitalization)
  Sender: FDA-Public Use
  Company Number: 2004-01-1263

PATIENT
  Age: 78 Year
  Sex: Male

DRUGS (12)
  1. QVAR 40 [Suspect]
     Indication: ASTHMA
     Dosage: 100 MCG QD ORAL AIR INH
     Route: 055
     Dates: start: 20030704, end: 20031027
  2. . [Concomitant]
  3. SULPERAZON [Suspect]
     Dosage: 2GM/DAY INTRAVENOUS
     Route: 042
     Dates: start: 20030920, end: 20031009
  4. CEFPIROME SULFATE [Suspect]
     Dosage: 2GM/DAY INTRAVENOUS
     Route: 042
     Dates: start: 20031009, end: 20031022
  5. ISEPACIN (ISEPAMICIN SULFATE) [Suspect]
     Dosage: 400MG/DAY INTRAVENOUS
     Route: 042
     Dates: start: 20031010, end: 20031021
  6. THEOPHYLLINE [Concomitant]
  7. DEXTROMETHORPHAN HYDROBROMIDE [Concomitant]
  8. BROCIN-CODEINE [Concomitant]
  9. CLENBUTEROL HYDROCHLORIDE [Concomitant]
  10. SALMETEROL XINAFOATE [Concomitant]
  11. HERBS AND FLOWERS [Concomitant]
  12. FUDOSTEINE [Concomitant]

REACTIONS (4)
  - CANDIDIASIS [None]
  - PNEUMONIA FUNGAL [None]
  - PSEUDOMONAS INFECTION [None]
  - SERRATIA INFECTION [None]
